FAERS Safety Report 8599620-2 (Version None)
Quarter: 2012Q3

REPORT INFORMATION
  Report Type: 
  Country: None (occurrence: None)
  Receive Date: 20120816
  Receipt Date: 20120814
  Transmission Date: 20120928
  Serious: No
  Sender: FDA-Public Use
  Company Number: US-PFIZER INC-2012198738

PATIENT
  Age: 20 Year
  Sex: Female

DRUGS (2)
  1. EFFEXOR [Suspect]
     Indication: DEPRESSION
     Dosage: 75 MG, (ONE TO TWO WEEKS)
     Dates: start: 20120101, end: 20120101
  2. EFFEXOR [Suspect]
     Indication: BIPOLAR DISORDER

REACTIONS (1)
  - MUSCLE TWITCHING [None]
